FAERS Safety Report 8417339-5 (Version None)
Quarter: 2012Q2

REPORT INFORMATION
  Report Type: 
  Country: None (occurrence: None)
  Receive Date: 20120606
  Receipt Date: 20120530
  Transmission Date: 20120825
  Serious: Yes (Death, Other)
  Sender: FDA-Public Use
  Company Number: FR-MPIJNJ-2012-03810

PATIENT

DRUGS (2)
  1. VELCADE [Suspect]
     Indication: AMYLOIDOSIS
  2. DEXAMETHASONE [Suspect]
     Indication: AMYLOIDOSIS

REACTIONS (2)
  - INFLUENZA A VIRUS TEST POSITIVE [None]
  - PULMONARY HAEMORRHAGE [None]
